FAERS Safety Report 8353890-4 (Version None)
Quarter: 2012Q2

REPORT INFORMATION
  Report Type: 
  Country: None (occurrence: None)
  Receive Date: 20120511
  Receipt Date: 20120214
  Transmission Date: 20120825
  Serious: No
  Sender: FDA-Public Use
  Company Number: US-GLAXOSMITHKLINE-A0965889A

PATIENT
  Age: 50 Year
  Sex: Female

DRUGS (8)
  1. OXYCONTIN [Concomitant]
  2. ZOMETA [Concomitant]
  3. TYKERB [Suspect]
     Indication: BREAST CANCER
     Dosage: 1250MG PER DAY
     Route: 048
     Dates: start: 20120210
  4. NEURONTIN [Concomitant]
  5. OXYCODONE HCL [Concomitant]
  6. CELEXA [Concomitant]
  7. ROBAXIN [Concomitant]
  8. XELODA [Concomitant]

REACTIONS (4)
  - PRURITUS [None]
  - RASH [None]
  - DIARRHOEA [None]
  - TREATMENT NONCOMPLIANCE [None]
